FAERS Safety Report 15898405 (Version 2)
Quarter: 2019Q1

REPORT INFORMATION
  Report Type: Spontaneous
  Country: US (occurrence: US)
  Receive Date: 20190201
  Receipt Date: 20190306
  Transmission Date: 20190417
  Serious: No
  Sender: FDA-Public Use
  Company Number: US-AMGEN INC.-USASP2019014957

PATIENT
  Age: 50 Year
  Sex: Female

DRUGS (2)
  1. AIMOVIG [Suspect]
     Active Substance: ERENUMAB-AOOE
     Indication: MIGRAINE PROPHYLAXIS
     Dosage: 70 MG, QMO
     Route: 065
     Dates: start: 201812
  2. SUMATRIPTAN. [Concomitant]
     Active Substance: SUMATRIPTAN
     Dosage: UNK

REACTIONS (4)
  - Drug dose omission by device [Unknown]
  - Wrong technique in product usage process [Unknown]
  - Accidental exposure to product [Unknown]
  - Device issue [Unknown]

NARRATIVE: CASE EVENT DATE: 201812
